FAERS Safety Report 5564512-X (Version None)
Quarter: 2007Q4

REPORT INFORMATION
  Report Type: 
  Country: None (occurrence: None)
  Receive Date: 20071218
  Receipt Date: 20071207
  Transmission Date: 20080405
  Serious: Yes (Hospitalization)
  Sender: FDA-Public Use
  Company Number: US-ELI_LILLY_AND_COMPANY-US200712001769

PATIENT
  Sex: Male
  Weight: 112.93 kg

DRUGS (8)
  1. SOMATROPIN [Suspect]
     Indication: GROWTH HORMONE DEFICIENCY
     Dosage: 0.6 MG, DAILY (1/D)
     Dates: start: 20021217, end: 20071103
  2. SOMATROPIN [Suspect]
     Dosage: 0.6 MG, DAILY (1/D)
     Dates: start: 20071107
  3. ANDROGEL [Concomitant]
     Indication: HYPOGONADISM
     Dosage: 5 G, DAILY (1/D)
     Route: 062
  4. LEVOXYL [Concomitant]
     Indication: HYPOTHYROIDISM
     Dosage: 0.125 MG, DAILY (1/D)
     Route: 048
  5. PREDNISONE [Concomitant]
     Indication: HYPOGONADISM
     Dosage: 3 MG, DAILY (1/D)
     Route: 048
  6. ZOCOR [Concomitant]
     Indication: HYPERLIPIDAEMIA
     Dosage: 20 MG, DAILY (1/D)
     Route: 048
  7. ASPIRIN [Concomitant]
     Dosage: UNK, DAILY (1/D)
     Route: 048
  8. MULTI-VITAMIN [Concomitant]
     Dosage: UNK, DAILY (1/D)
     Route: 048

REACTIONS (1)
  - PNEUMONIA [None]
